FAERS Safety Report 17484218 (Version 5)
Quarter: 2021Q2

REPORT INFORMATION
  Report Type: Report from Study
  Country: GB (occurrence: GB)
  Receive Date: 20200302
  Receipt Date: 20210608
  Transmission Date: 20210716
  Serious: Yes (Hospitalization, Other)
  Sender: FDA-Public Use
  Company Number: GB-MYLANLABS-2018M1053904

PATIENT
  Age: 24 Year
  Sex: Female

DRUGS (107)
  1. DOCUSATE [Concomitant]
     Active Substance: DOCUSATE
     Indication: CONSTIPATION
     Dosage: 100 MILLIGRAM
     Route: 048
     Dates: start: 20191009
  2. TAMOXIFEN [Concomitant]
     Active Substance: TAMOXIFEN
     Indication: BREAST CANCER
     Dosage: 20 MILLIGRAM
     Route: 048
     Dates: start: 20160509, end: 20160921
  3. CAPECITABINE. [Suspect]
     Active Substance: CAPECITABINE
     Dosage: 1800 MILLIGRAM, QD
     Dates: start: 20170719, end: 20170830
  4. PERTUZUMAB. [Suspect]
     Active Substance: PERTUZUMAB
     Indication: HER2 POSITIVE BREAST CANCER
     Dosage: 840 MILLIGRAM, Q3W
     Route: 042
     Dates: start: 20150817, end: 20150817
  5. VORHYALURONIDASE ALFA [Suspect]
     Active Substance: HYALURONIDASE (HUMAN RECOMBINANT)
     Indication: PRODUCT USED FOR UNKNOWN INDICATION
     Dosage: 600 MG, LOADING DOSE
     Route: 058
     Dates: start: 20150817, end: 20150817
  6. DEXAMETHASONE. [Concomitant]
     Active Substance: DEXAMETHASONE
     Indication: PAIN
     Dosage: 6 MILLIGRAM, QD
     Route: 048
     Dates: start: 20191023, end: 20191031
  7. DEXAMETHASONE. [Concomitant]
     Active Substance: DEXAMETHASONE
     Dosage: 10 MILLIGRAM, QD
     Route: 048
  8. COLECALCIFEROL [Concomitant]
     Active Substance: CHOLECALCIFEROL
     Dosage: 1.25 GRAM, QD
     Dates: start: 20171122
  9. DESUNIN [Concomitant]
     Active Substance: CHOLECALCIFEROL
     Dosage: 800 INTERNATIONAL UNIT, QD
     Route: 048
     Dates: start: 20160323, end: 20160615
  10. LETROZOLE. [Concomitant]
     Active Substance: LETROZOLE
     Indication: BREAST CANCER
     Dosage: 2.5 MILLIGRAM, QD (29/NOV/2017)
     Route: 048
     Dates: start: 20171129, end: 20190515
  11. DALTEPARIN [Concomitant]
     Active Substance: DALTEPARIN
     Indication: CHEST PAIN
     Dosage: 50000 INTERNATIONAL UNIT
     Route: 058
     Dates: start: 20180201, end: 20180201
  12. NAPROXEN                           /00256202/ [Concomitant]
     Active Substance: NAPROXEN SODIUM
     Indication: BACK PAIN
     Dosage: 500 MILLIGRAM, QD
     Route: 048
     Dates: start: 20161012
  13. ADCAL                              /07357001/ [Concomitant]
     Active Substance: CALCIUM CARBONATE
     Indication: PROPHYLAXIS
     Dosage: 1 DOSAGE FORM, QD
     Route: 048
     Dates: start: 20160202
  14. CODEINE PHOSPHATE [Concomitant]
     Active Substance: CODEINE PHOSPHATE
     Indication: CATHETER SITE PAIN
     Dosage: UNK
     Dates: start: 20180208, end: 20180322
  15. DOCETAXEL. [Suspect]
     Active Substance: DOCETAXEL
     Indication: BREAST CANCER METASTATIC
     Dosage: 140 MILLIGRAM, Q3W
     Route: 042
     Dates: start: 20150818
  16. PARACETAMOL [Concomitant]
     Active Substance: ACETAMINOPHEN
     Dosage: 4 GRAM, QD
     Route: 048
  17. ORAMORPH [Concomitant]
     Active Substance: MORPHINE SULFATE
     Indication: SENSORY LOSS
     Dosage: 10 MILLIGRAM
     Route: 048
     Dates: start: 20150708
  18. LORAZEPAM. [Concomitant]
     Active Substance: LORAZEPAM
     Dosage: 0.5 MILLIGRAM, QD
     Route: 048
     Dates: start: 20191021
  19. AMITRIPTYLINE [Concomitant]
     Active Substance: AMITRIPTYLINE
     Indication: NEURALGIA
     Dosage: 10 MILLIGRAM, QD
     Route: 048
     Dates: start: 20180111, end: 20180322
  20. LAXIDO [Concomitant]
     Active Substance: POLYETHYLENE GLYCOL 3350\POTASSIUM CHLORIDE\SODIUM BICARBONATE\SODIUM CHLORIDE
     Dosage: 7.5 MILLIGRAM, QD
     Route: 048
     Dates: start: 20171122
  21. METOCLOPRAMIDE. [Concomitant]
     Active Substance: METOCLOPRAMIDE
     Dosage: 10 MILLIGRAM
     Route: 048
     Dates: start: 20190429
  22. CEFOTAXIME [Concomitant]
     Active Substance: CEFOTAXIME SODIUM
     Indication: PYREXIA
     Dosage: 1.2 GRAM, QD (1.2 G, 3X/DAY)
     Route: 042
     Dates: start: 20191023, end: 20191027
  23. SODIUM VALPROATE [Concomitant]
     Active Substance: VALPROATE SODIUM
     Indication: HEADACHE
     Dosage: 200 MILLIGRAM
     Route: 048
     Dates: start: 20191023
  24. TRASTUZUMAB. [Suspect]
     Active Substance: TRASTUZUMAB
     Indication: BREAST CANCER METASTATIC
     Dosage: 600 MILLIGRAM, Q3W
     Route: 058
     Dates: start: 20170719
  25. TRASTUZUMAB. [Suspect]
     Active Substance: TRASTUZUMAB
     Dosage: 450 MILLIGRAM, Q3W, 450 MG, EVERY 3 WEEKS, MAINTENNACE DOSE
     Route: 058
     Dates: start: 20150908, end: 20160831
  26. TRASTUZUMAB. [Suspect]
     Active Substance: TRASTUZUMAB
     Dosage: 600 MILLIGRAM LOADING DOSE
     Route: 058
     Dates: start: 20170719, end: 20190911
  27. CAPECITABINE. [Suspect]
     Active Substance: CAPECITABINE
     Dosage: 1450 MILLIGRAM, QD
     Route: 048
     Dates: start: 20170830, end: 20171101
  28. ERIBULIN [Suspect]
     Active Substance: ERIBULIN
     Indication: BREAST CANCER METASTATIC
  29. METHOTREXATE. [Suspect]
     Active Substance: METHOTREXATE
     Indication: BREAST CANCER METASTATIC
     Dosage: 6 MILLIGRAM, BIWEEKLY (6 MG, 2X/WEEK)
     Dates: start: 20191002, end: 20191002
  30. DEXAMETHASONE. [Concomitant]
     Active Substance: DEXAMETHASONE
     Dosage: 4 MILLIGRAM, QD
     Route: 048
     Dates: start: 20191031, end: 20191031
  31. DEXAMETHASONE. [Concomitant]
     Active Substance: DEXAMETHASONE
     Dosage: 8 MILLIGRAM
     Route: 048
     Dates: start: 20150819, end: 20150821
  32. PARACETAMOL [Concomitant]
     Active Substance: ACETAMINOPHEN
     Dosage: 1 GRAM, QD (1 G, 4X/DAY (EVERY 0.25 DAYS))
     Route: 048
     Dates: start: 20190911, end: 20190916
  33. ORAMORPH [Concomitant]
     Active Substance: MORPHINE SULFATE
     Indication: ANALGESIC THERAPY
  34. NAPROXEN                           /00256202/ [Concomitant]
     Active Substance: NAPROXEN SODIUM
     Dosage: 250 MILLIGRAM, TID
     Route: 048
     Dates: start: 20190911, end: 20190916
  35. TINZAPARIN [Concomitant]
     Active Substance: TINZAPARIN
     Dosage: 25000 INTERNATIONAL UNIT, QD
     Route: 058
     Dates: start: 20190911, end: 20190917
  36. IBUPROFEN. [Concomitant]
     Active Substance: IBUPROFEN
     Indication: PAIN
     Dosage: 1200 MILLIGRAM, QD
     Route: 048
     Dates: start: 20150708
  37. FENTANYL. [Concomitant]
     Active Substance: FENTANYL
     Indication: ANALGESIC THERAPY
     Dosage: 25 MICROGRAM, TID
     Dates: start: 20191017, end: 20191224
  38. FILGRASTIM [Concomitant]
     Active Substance: FILGRASTIM
     Dosage: 480 MICROGRAM
     Route: 058
     Dates: start: 20150819, end: 20150823
  39. ZOLEDRONIC ACID [Concomitant]
     Active Substance: ZOLEDRONIC ACID
     Indication: FRACTURE
     Dosage: 4 MILLIGRAM, Q3W
     Route: 042
     Dates: start: 20150708, end: 20150708
  40. TRASTUZUMAB. [Suspect]
     Active Substance: TRASTUZUMAB
     Dosage: 260 MILLIGRAM, Q3W
     Route: 042
     Dates: start: 20160921, end: 20170531
  41. CAPECITABINE. [Suspect]
     Active Substance: CAPECITABINE
     Dosage: 3600 MILLIGRAM, QD
     Route: 048
     Dates: start: 20170719, end: 20170830
  42. ERIBULIN [Suspect]
     Active Substance: ERIBULIN
     Indication: HER2 POSITIVE BREAST CANCER
     Dosage: 1.89 MILLIGRAM, Q3W
     Route: 042
     Dates: start: 20190429, end: 20190911
  43. LANSOPRAZOLE. [Concomitant]
     Active Substance: LANSOPRAZOLE
     Dosage: 30 MILLIGRAM, QD
     Route: 048
     Dates: start: 20190911
  44. DEXAMETHASONE. [Concomitant]
     Active Substance: DEXAMETHASONE
     Indication: METASTASES TO CENTRAL NERVOUS SYSTEM
     Dosage: 08 MILLIGRAM
     Route: 048
     Dates: start: 20150819, end: 20150821
  45. DEXAMETHASONE. [Concomitant]
     Active Substance: DEXAMETHASONE
     Indication: VOMITING
     Dosage: 8 MILLIGRAM
     Route: 048
     Dates: start: 20150909, end: 20150911
  46. DEXAMETHASONE. [Concomitant]
     Active Substance: DEXAMETHASONE
     Dosage: 6 MILLIGRAM, QD
     Route: 048
     Dates: start: 20190220, end: 20190227
  47. MORPHINE [Concomitant]
     Active Substance: MORPHINE
     Dosage: 25 MILLIGRAM
     Route: 048
     Dates: start: 20191008, end: 20191008
  48. PARACETAMOL [Concomitant]
     Active Substance: ACETAMINOPHEN
     Indication: BACK PAIN
     Dosage: 1 GRAM, PRN
     Route: 048
     Dates: start: 20160921
  49. DESUNIN [Concomitant]
     Active Substance: CHOLECALCIFEROL
     Indication: VITAMIN D DECREASED
     Dosage: 800 INTERNATIONAL UNIT, QD
     Route: 048
     Dates: start: 20150722, end: 20150924
  50. IBUPROFEN. [Concomitant]
     Active Substance: IBUPROFEN
     Indication: ANALGESIC THERAPY
     Dosage: 400 MILLIGRAM, QD
     Route: 048
     Dates: start: 20180306, end: 20180306
  51. METOCLOPRAMIDE. [Concomitant]
     Active Substance: METOCLOPRAMIDE
     Indication: NAUSEA
     Dosage: 10 MILLIGRAM, QD
     Route: 042
     Dates: start: 20150818, end: 20150818
  52. SENNA                              /00142201/ [Concomitant]
     Active Substance: SENNA LEAF
     Indication: CONSTIPATION
     Dosage: 7.5 MILLIGRAM, QD
     Route: 048
     Dates: start: 20171122
  53. CAPECITABINE. [Suspect]
     Active Substance: CAPECITABINE
     Indication: BREAST CANCER METASTATIC
     Dosage: 1800 MILLIGRAM
     Route: 048
  54. PERTUZUMAB. [Suspect]
     Active Substance: PERTUZUMAB
     Indication: BREAST CANCER METASTATIC
     Dosage: 420 MG, EVERY 3 WEEKS, MAINTENANCE DOSE
     Route: 042
     Dates: start: 20150908
  55. CYCLOPHOSPHAMIDE. [Suspect]
     Active Substance: CYCLOPHOSPHAMIDE
     Dosage: 1000 MG, EVERY 3 WEEKS
     Route: 042
     Dates: start: 20191112
  56. METHOTREXATE. [Suspect]
     Active Substance: METHOTREXATE
     Indication: BREAST CANCER METASTATIC
     Dosage: 10 MILLIGRAM, BIWEEKLY 10 MILLIGRAM, BIWEEKLY (10 MG, 2TIMES PER WEEK)
     Dates: start: 20191007
  57. DEXAMETHASONE. [Concomitant]
     Active Substance: DEXAMETHASONE
     Dosage: 500 MICROGRAM, QD
     Route: 048
     Dates: start: 20190314, end: 20190317
  58. LORAZEPAM. [Concomitant]
     Active Substance: LORAZEPAM
     Indication: INSOMNIA
     Dosage: 0.5 MILLIGRAM, QD
     Route: 048
     Dates: start: 20180322
  59. GABAPENTIN. [Concomitant]
     Active Substance: GABAPENTIN
     Dosage: 300 MILLIGRAM, QD (300 MG, 2X/DAY)
     Route: 048
     Dates: start: 20191011, end: 20191018
  60. DICLOFENAC [Concomitant]
     Active Substance: DICLOFENAC
     Indication: PAIN
     Dosage: 1 GTT DROPS
     Route: 061
     Dates: start: 20181107, end: 20190131
  61. IBUPROFEN. [Concomitant]
     Active Substance: IBUPROFEN
     Dosage: 400 MILLIGRAM, QD (400 MG, 3X/DAY (EVERY 0.33 DAY)
     Route: 048
     Dates: start: 20150708, end: 20180306
  62. LAXIDO [Concomitant]
     Active Substance: POLYETHYLENE GLYCOL 3350\POTASSIUM CHLORIDE\SODIUM BICARBONATE\SODIUM CHLORIDE
     Indication: CONSTIPATION
     Dosage: 2 DOSAGE FORM, QD
     Route: 048
  63. COCODAMOL [Concomitant]
     Active Substance: ACETAMINOPHEN\CODEINE PHOSPHATE
     Indication: PAIN
     Dosage: 8 MILLIGRAM
     Route: 048
  64. GOSERELIN [Concomitant]
     Active Substance: GOSERELIN
     Dosage: 3.6 MILLIGRAM PER 4 WEEK
     Route: 058
     Dates: start: 20171101, end: 20190515
  65. MORPHINE SULPHATE [Concomitant]
     Active Substance: MORPHINE SULFATE
     Indication: ANALGESIC THERAPY
     Dosage: 25 MILLIGRAM
     Route: 048
     Dates: start: 20191008
  66. TRASTUZUMAB. [Suspect]
     Active Substance: TRASTUZUMAB
     Dosage: 600 MILLIGRAM, LOADING DOSE
     Route: 058
     Dates: start: 20150817, end: 20150817
  67. DEXAMETHASONE. [Concomitant]
     Active Substance: DEXAMETHASONE
     Indication: SENSORY LOSS
     Dosage: 500 MICROGRAM, QD
     Route: 048
  68. DEXAMETHASONE. [Concomitant]
     Active Substance: DEXAMETHASONE
     Dosage: 2 MILLIGRAM, QD
     Route: 048
     Dates: start: 20190306, end: 20190309
  69. DEXAMETHASONE. [Concomitant]
     Active Substance: DEXAMETHASONE
     Dosage: 8 MILLIGRAM, QD
     Route: 048
     Dates: start: 20190911, end: 20190919
  70. DEXAMETHASONE. [Concomitant]
     Active Substance: DEXAMETHASONE
     Dosage: 8 MILLIGRAM, QD
     Route: 048
     Dates: start: 20190212, end: 20190219
  71. MORPHINE [Concomitant]
     Active Substance: MORPHINE
     Indication: SENSORY LOSS
     Dosage: 10 MILLIGRAM
     Route: 048
     Dates: start: 20150708
  72. CYCLIZINE [Concomitant]
     Active Substance: CYCLIZINE
     Indication: NAUSEA
     Dosage: 50 MILLIGRAM
     Route: 048
     Dates: start: 20180208, end: 20191009
  73. NAPROXEN                           /00256202/ [Concomitant]
     Active Substance: NAPROXEN SODIUM
     Indication: PAIN
     Dosage: 750 MILLIGRAM, QD
     Route: 048
  74. DIAZEPAM. [Concomitant]
     Active Substance: DIAZEPAM
     Indication: SEDATION
     Dosage: 2 MILLIGRAM, QD
     Route: 048
     Dates: start: 20150708, end: 20150722
  75. LAXIDO [Concomitant]
     Active Substance: POLYETHYLENE GLYCOL 3350\POTASSIUM CHLORIDE\SODIUM BICARBONATE\SODIUM CHLORIDE
     Dosage: 1 DOSAGE FORM, QD  (1 SACHET)
     Route: 048
     Dates: start: 20190911, end: 20191009
  76. DENOSUMAB [Concomitant]
     Active Substance: DENOSUMAB
     Indication: PROPHYLAXIS
     Dosage: 120 MILLIGRAM, Q3W
     Route: 058
     Dates: start: 20160405, end: 20190910
  77. FILGRASTIM [Concomitant]
     Active Substance: FILGRASTIM
     Indication: NEUTROPENIA
     Dosage: 480 MICROGRAM
     Route: 058
     Dates: start: 20150909, end: 20150913
  78. ZOLEDRONIC ACID [Concomitant]
     Active Substance: ZOLEDRONIC ACID
     Dosage: 3 MILLIGRAM, Q3W
     Route: 042
     Dates: start: 20150929
  79. EPIRUBICIN [Suspect]
     Active Substance: EPIRUBICIN
     Indication: BREAST CANCER METASTATIC
     Dosage: 170 MILLIGRAM, Q3W
     Route: 042
     Dates: start: 20150724
  80. ERIBULIN MESYLATE [Suspect]
     Active Substance: ERIBULIN MESYLATE
     Indication: PRODUCT USED FOR UNKNOWN INDICATION
  81. CYCLOPHOSPHAMIDE. [Suspect]
     Active Substance: CYCLOPHOSPHAMIDE
     Indication: BREAST CANCER METASTATIC
     Dosage: 1000 MILLIGRAM, TID
     Route: 042
     Dates: start: 20191112
  82. LANSOPRAZOLE. [Concomitant]
     Active Substance: LANSOPRAZOLE
     Dosage: 30 MILLIGRAM, QD
     Route: 048
     Dates: start: 20180306, end: 20180322
  83. DEXAMETHASONE. [Concomitant]
     Active Substance: DEXAMETHASONE
     Dosage: 1 MILLIGRAM
     Route: 048
     Dates: start: 20190310, end: 20190313
  84. DEXAMETHASONE. [Concomitant]
     Active Substance: DEXAMETHASONE
     Dosage: 6.6 MILLIGRAM, QD
     Route: 048
     Dates: start: 20190429, end: 20190429
  85. MORPHINE [Concomitant]
     Active Substance: MORPHINE
     Indication: PAIN
     Dosage: 20 MILLIGRAM, BID
     Route: 048
  86. MORPHINE [Concomitant]
     Active Substance: MORPHINE
     Indication: ANALGESIC THERAPY
     Dosage: 20 MILLIGRAM, QD (20 MG, EVERY 0.5 DAYS)
     Route: 048
     Dates: start: 20190911, end: 20191008
  87. COLECALCIFEROL [Concomitant]
     Active Substance: CHOLECALCIFEROL
     Dosage: 1.5 GRAM, QD
     Dates: start: 20171122
  88. NAPROXEN                           /00256202/ [Concomitant]
     Active Substance: NAPROXEN SODIUM
     Dosage: 250 MILLIGRAM, BID
     Route: 048
     Dates: start: 20161012
  89. GABAPENTIN. [Concomitant]
     Active Substance: GABAPENTIN
     Indication: SENSORY LOSS
     Dosage: 600 MILLIGRAM, QD
     Route: 048
  90. GABAPENTIN. [Concomitant]
     Active Substance: GABAPENTIN
     Dosage: 300 MILLIGRAM, QD(300 MG, 2X/DAY)
     Route: 048
     Dates: start: 20191009, end: 20191011
  91. GABAPENTIN. [Concomitant]
     Active Substance: GABAPENTIN
     Dosage: 900 MILLIGRAM, QD(900 MG, 3X/DAY)
     Route: 048
     Dates: start: 20191023
  92. SENNA [Concomitant]
     Active Substance: SENNA LEAF\SENNOSIDES\SENNOSIDES A AND B
     Indication: CONSTIPATION
     Dosage: 7.5 MILLIGRAM, QD
     Route: 048
     Dates: start: 20171122
  93. IBUPROFEN. [Concomitant]
     Active Substance: IBUPROFEN
     Dosage: 2 MILLIGRAM, QD
     Route: 048
  94. METOCLOPRAMIDE. [Concomitant]
     Active Substance: METOCLOPRAMIDE
     Dosage: 10 MILLIGRAM, QD
     Route: 042
     Dates: start: 20190429
  95. METOCLOPRAMIDE. [Concomitant]
     Active Substance: METOCLOPRAMIDE
     Dosage: 10 MILLIGRAM
     Route: 042
     Dates: start: 20150908, end: 20150908
  96. CAPECITABINE. [Suspect]
     Active Substance: CAPECITABINE
     Dosage: 2900 MILLIGRAM, QD
     Route: 048
     Dates: start: 20170830, end: 20171101
  97. VORHYALURONIDASE ALFA [Suspect]
     Active Substance: HYALURONIDASE (HUMAN RECOMBINANT)
     Dosage: 450 MG, EVERY 3 WEEKS, MAINTENNACE DOSE
     Route: 058
     Dates: start: 20150908, end: 20160831
  98. VORHYALURONIDASE ALFA [Suspect]
     Active Substance: HYALURONIDASE (HUMAN RECOMBINANT)
     Dosage: 600 MG, LOADING DOSE
     Route: 058
     Dates: start: 20170719
  99. DEXAMETHASONE. [Concomitant]
     Active Substance: DEXAMETHASONE
     Dosage: 8 MILLIGRAM, QD
     Route: 048
     Dates: start: 20190920, end: 20191023
  100. DESUNIN [Concomitant]
     Active Substance: CHOLECALCIFEROL
     Dosage: 800 INTERNATIONAL UNIT, QD
     Route: 048
     Dates: start: 20160331
  101. ORAMORPH [Concomitant]
     Active Substance: MORPHINE SULFATE
     Indication: PAIN
     Dosage: 7.5 MILLIGRAM, QD
     Route: 048
     Dates: start: 20190911, end: 20191018
  102. NAPROXEN                           /00256202/ [Concomitant]
     Active Substance: NAPROXEN SODIUM
     Indication: SENSORY LOSS
     Dosage: UNK
  103. GABAPENTIN. [Concomitant]
     Active Substance: GABAPENTIN
     Indication: PAIN
     Dosage: 600 MILLIGRAM, QD
     Route: 048
  104. GABAPENTIN. [Concomitant]
     Active Substance: GABAPENTIN
     Dosage: 25 MILLIGRAM, QD(25 MG, 2X/DAY)
     Route: 048
     Dates: start: 20191017, end: 20191224
  105. GABAPENTIN. [Concomitant]
     Active Substance: GABAPENTIN
     Dosage: 200 MILLIGRAM, QD (200 MG, 3X/DAY)
     Route: 048
     Dates: start: 20190911, end: 20191009
  106. DEXAMETHASONE. [Concomitant]
     Active Substance: DEXAMETHASONE
     Dosage: 6.6 MILLIGRAM, QD
     Route: 042
     Dates: start: 20190429, end: 20190429
  107. CODEINE [Concomitant]
     Active Substance: CODEINE
     Indication: ANALGESIC THERAPY
     Dosage: 30 MILLIGRAM, QD
     Route: 048

REACTIONS (5)
  - Myalgia [Unknown]
  - Neuropathy peripheral [Recovered/Resolved]
  - Fatigue [Recovered/Resolved]
  - Dyspnoea [Recovered/Resolved with Sequelae]
  - Rash [Recovered/Resolved]

NARRATIVE: CASE EVENT DATE: 20150930
